FAERS Safety Report 8163018 (Version 3)
Quarter: 2012Q4

REPORT INFORMATION
  Report Type: 
  Country: SE (occurrence: SE)
  Receive Date: 20110930
  Receipt Date: 20121010
  Transmission Date: 20130627
  Serious: Yes (Other)
  Sender: FDA-Public Use
  Company Number: SE-AMGEN-SWESP2011037639

PATIENT
  Age: 75 Year
  Sex: Female
  Weight: 67 kg

DRUGS (6)
  1. PROLIA [Suspect]
     Indication: OSTEOPOROSIS
     Dosage: UNK
     Route: 058
     Dates: start: 20110524
  2. KALCIPOS-D [Concomitant]
     Indication: OSTEOPOROSIS
     Dosage: 1 UNK, bid
     Route: 048
  3. LEVAXIN [Concomitant]
     Indication: HYPOTHYROIDISM
  4. EMCONCOR [Concomitant]
     Indication: PALPITATIONS
  5. MODURETIC [Concomitant]
     Indication: PALPITATIONS
  6. KALEORID [Concomitant]

REACTIONS (11)
  - Irritable bowel syndrome [Unknown]
  - Abdominal pain upper [Recovering/Resolving]
  - Nausea [Unknown]
  - Rhinorrhoea [Unknown]
  - Eye pain [Unknown]
  - Malaise [Not Recovered/Not Resolved]
  - Burning sensation mucosal [Unknown]
  - Glossodynia [Not Recovered/Not Resolved]
  - Mucous membrane disorder [Not Recovered/Not Resolved]
  - Eye discharge [Not Recovered/Not Resolved]
  - Blister [Unknown]
